FAERS Safety Report 19183515 (Version 1)
Quarter: 2021Q2

REPORT INFORMATION
  Report Type: Spontaneous
  Country: PL (occurrence: PL)
  Receive Date: 20210427
  Receipt Date: 20210427
  Transmission Date: 20210717
  Serious: Yes (Other)
  Sender: FDA-Public Use
  Company Number: NVSC2021PL084854

PATIENT
  Age: 67 Year
  Sex: Male
  Weight: 101 kg

DRUGS (2)
  1. METHOTREXATE. [Suspect]
     Active Substance: METHOTREXATE
     Indication: RHEUMATOID ARTHRITIS
     Dosage: 25 MG (DATE OF LAST ADMINISTRATION: 12 FEB 2018)
     Route: 048
     Dates: start: 20150908
  2. SALAZOPIRINA [Suspect]
     Active Substance: SULFASALAZINE
     Indication: RHEUMATOID ARTHRITIS
     Dosage: 3 G (DATE OF LAST ADMINISTRATION: 12 FEB 2018)
     Route: 048
     Dates: start: 20151230

REACTIONS (1)
  - Lung disorder [Recovering/Resolving]

NARRATIVE: CASE EVENT DATE: 20180212
